FAERS Safety Report 14745580 (Version 1)
Quarter: 2018Q2

REPORT INFORMATION
  Report Type: Spontaneous
  Country: US (occurrence: US)
  Receive Date: 20180411
  Receipt Date: 20180411
  Transmission Date: 20180711
  Serious: No
  Sender: FDA-Public Use
  Company Number: US-009507513-1803USA012981

PATIENT
  Sex: Male

DRUGS (1)
  1. CLARINEX [Suspect]
     Active Substance: DESLORATADINE
     Dosage: 1 TABLET DAILY
     Route: 048

REACTIONS (3)
  - Drug dose omission [Unknown]
  - Product availability issue [Unknown]
  - No adverse event [Unknown]
